FAERS Safety Report 4637674-6 (Version None)
Quarter: 2005Q2

REPORT INFORMATION
  Report Type: 
  Country: None (occurrence: None)
  Receive Date: 20050418
  Receipt Date: 20050225
  Transmission Date: 20051028
  Serious: Yes (Other)
  Sender: FDA-Public Use
  Company Number: PHNU2005DE01116

PATIENT
  Age: 40 Year
  Sex: Male
  Weight: 74 kg

DRUGS (3)
  1. SYMPATHOMIMETICS [Concomitant]
     Indication: ASTHMA
  2. SANDIMMUNE [Suspect]
     Indication: POLYNEUROPATHY
     Dosage: 100 MG, BID
     Route: 048
     Dates: start: 20041201
  3. SALBUHEXAL [Concomitant]
     Dosage: UNK, PRN

REACTIONS (2)
  - COCCYDYNIA [None]
  - SPINAL OSTEOARTHRITIS [None]
